FAERS Safety Report 8812055 (Version 1)
Quarter: 2012Q4

REPORT INFORMATION
  Report Type: 
  Country: US (occurrence: US)
  Receive Date: 20120927
  Receipt Date: 20120927
  Transmission Date: 20130627
  Serious: Yes (Other)
  Sender: FDA-Public Use
  Company Number: CHPA2012US020259

PATIENT
  Age: 52 Year
  Sex: Female

DRUGS (5)
  1. BENEFIBER W/ WHEAT DEXTRIN [Suspect]
     Indication: CONSTIPATION
     Dosage: UNK, Daily
     Dates: start: 2010
  2. ASPIRIN ^BAYER^ [Concomitant]
     Dates: start: 2010
  3. FLAXSEED OIL [Concomitant]
     Dates: start: 2010
  4. OMEGA 3 FISH OIL [Concomitant]
     Dates: start: 2010
  5. IRON [Concomitant]
     Dosage: UNK, UNK
     Dates: start: 201207

REACTIONS (3)
  - Haemoglobin decreased [Recovered/Resolved]
  - Off label use [Unknown]
  - Wrong technique in drug usage process [Unknown]
